FAERS Safety Report 5910341-4 (Version None)
Quarter: 2008Q4

REPORT INFORMATION
  Report Type: 
  Country: None (occurrence: None)
  Receive Date: 20081007
  Receipt Date: 20071205
  Transmission Date: 20090506
  Serious: No
  Sender: FDA-Public Use
  Company Number: US-ASTRAZENECA-2007UW27748

PATIENT
  Age: 64 Year
  Sex: Female
  Weight: 95.3 kg

DRUGS (3)
  1. ARIMIDEX [Suspect]
     Indication: BREAST CANCER
     Route: 048
  2. ZOLOFT [Concomitant]
  3. SPIRONOLACT/HCTZ [Concomitant]

REACTIONS (4)
  - ASTHENIA [None]
  - DIARRHOEA [None]
  - ERYTHEMA [None]
  - OEDEMA PERIPHERAL [None]
